FAERS Safety Report 15313818 (Version 2)
Quarter: 2018Q3

REPORT INFORMATION
  Report Type: Spontaneous
  Country: US (occurrence: US)
  Receive Date: 20180824
  Receipt Date: 20180828
  Transmission Date: 20181010
  Serious: No
  Sender: FDA-Public Use
  Company Number: US-SHIRE-US201832728

PATIENT
  Age: 74 Year
  Sex: Female
  Weight: 63.49 kg

DRUGS (2)
  1. XIIDRA [Suspect]
     Active Substance: LIFITEGRAST
     Indication: DRY EYE
     Dosage: UNK
     Route: 047
     Dates: start: 2017, end: 2017
  2. XIIDRA [Suspect]
     Active Substance: LIFITEGRAST
     Dosage: 1 GTT, 4X/DAY:QID
     Route: 047
     Dates: start: 20180818

REACTIONS (8)
  - Vision blurred [Not Recovered/Not Resolved]
  - Incorrect dose administered [Recovered/Resolved]
  - Product quality issue [Unknown]
  - Instillation site inflammation [Unknown]
  - Instillation site reaction [Unknown]
  - Instillation site pain [Not Recovered/Not Resolved]
  - Arthritis [Not Recovered/Not Resolved]
  - Lacrimation increased [Not Recovered/Not Resolved]

NARRATIVE: CASE EVENT DATE: 2017
